FAERS Safety Report 10049819 (Version 1)
Quarter: 2014Q1

REPORT INFORMATION
  Report Type: Spontaneous
  Country: US (occurrence: None)
  Receive Date: 20140331
  Receipt Date: 20140331
  Transmission Date: 20141002
  Serious: No
  Sender: FDA-Public Use
  Company Number: None

PATIENT
  Age: 77 Year
  Sex: Female
  Weight: 71.4 kg

DRUGS (1)
  1. CISPLATIN [Suspect]

REACTIONS (6)
  - Hyponatraemia [None]
  - Hypovolaemia [None]
  - Vomiting [None]
  - Diarrhoea [None]
  - Blood pressure increased [None]
  - Blood glucose increased [None]
